FAERS Safety Report 7138654-1 (Version None)
Quarter: 2010Q4

REPORT INFORMATION
  Report Type: 
  Country: None (occurrence: None)
  Receive Date: 20101201
  Receipt Date: 20101201
  Transmission Date: 20110411
  Serious: Yes (Hospitalization, Other)
  Sender: FDA-Public Use
  Company Number: None

PATIENT
  Age: 36 Year
  Sex: Male
  Weight: 84.369 kg

DRUGS (2)
  1. PROPOXYPHENE HCL AND ACETAMINOPHEN [Suspect]
     Indication: TOOTHACHE
     Dosage: 1 TO 2 TABLETS EVERY 4 HOURS
     Dates: start: 20090301, end: 20090320
  2. PROPOXYPHENE HCL AND ACETAMINOPHEN [Suspect]
     Indication: TOOTHACHE
     Dosage: 1 TO 2 TABLETS EVERY 4 HOURS
     Dates: start: 20100912, end: 20101129

REACTIONS (4)
  - CARDIAC DISORDER [None]
  - DYSPNOEA [None]
  - FALL [None]
  - PALPITATIONS [None]
